FAERS Safety Report 5416507-4 (Version None)
Quarter: 2007Q3

REPORT INFORMATION
  Report Type: 
  Country: None (occurrence: None)
  Receive Date: 20070814
  Receipt Date: 20070801
  Transmission Date: 20080115
  Serious: Yes (Hospitalization, Other)
  Sender: FDA-Public Use
  Company Number: 070802-0000726

PATIENT
  Age: 7 Year

DRUGS (1)
  1. ELSPAR [Suspect]
     Indication: ACUTE LYMPHOCYTIC LEUKAEMIA
     Dosage: ;IV
     Route: 042

REACTIONS (6)
  - CONVULSION [None]
  - CYST [None]
  - ISCHAEMIC STROKE [None]
  - PANCREATIC PSEUDOCYST [None]
  - PANCREATITIS [None]
  - TREATMENT FAILURE [None]
